FAERS Safety Report 7902559-6 (Version None)
Quarter: 2011Q4

REPORT INFORMATION
  Report Type: 
  Country: None (occurrence: None)
  Receive Date: 20111108
  Receipt Date: 20111104
  Transmission Date: 20120403
  Serious: Yes (Death, Life-Threatening)
  Sender: FDA-Public Use
  Company Number: US-B.I. PHARMACEUTICALS,INC./RIDGEFIELD-2011-BP-24031BP

PATIENT
  Sex: Male

DRUGS (3)
  1. LOVENOX [Suspect]
  2. PLAVIX [Concomitant]
  3. PRADAXA [Suspect]

REACTIONS (3)
  - CEREBROVASCULAR ACCIDENT [None]
  - HAEMORRHAGE INTRACRANIAL [None]
  - ILL-DEFINED DISORDER [None]
